FAERS Safety Report 17598387 (Version 1)
Quarter: 2020Q1

REPORT INFORMATION
  Report Type: Spontaneous
  Country: US (occurrence: US)
  Receive Date: 20200328
  Receipt Date: 20200328
  Transmission Date: 20200409
  Serious: No
  Sender: FDA-Public Use
  Company Number: None

PATIENT
  Age: 83 Year
  Sex: Female
  Weight: 69.3 kg

DRUGS (6)
  1. VITAMIN D3 [Concomitant]
     Active Substance: CHOLECALCIFEROL
  2. BABY ASPIRIN [Concomitant]
     Active Substance: ASPIRIN
  3. LEVOTHYROXIN [Concomitant]
     Active Substance: LEVOTHYROXINE
  4. FOLIC [Concomitant]
     Active Substance: FOLIC ACID
  5. XOFLUZA [Suspect]
     Active Substance: BALOXAVIR MARBOXIL
  6. CALCIUM CITRATE [Concomitant]
     Active Substance: CALCIUM CITRATE

REACTIONS (4)
  - Dehydration [None]
  - Diarrhoea [None]
  - Heart rate increased [None]
  - Heart rate decreased [None]

NARRATIVE: CASE EVENT DATE: 20200305
